FAERS Safety Report 12076940 (Version 1)
Quarter: 2016Q1

REPORT INFORMATION
  Report Type: Spontaneous
  Country: JP (occurrence: JP)
  Receive Date: 20160215
  Receipt Date: 20160215
  Transmission Date: 20160526
  Serious: Yes (Hospitalization, Other)
  Sender: FDA-Public Use
  Company Number: JP-XENOPORT, INC.-2016JP001286

PATIENT
  Age: 70 Year
  Sex: Female

DRUGS (1)
  1. REGNITE [Suspect]
     Active Substance: GABAPENTIN ENACARBIL
     Indication: PRODUCT USED FOR UNKNOWN INDICATION
     Dosage: 300 MG, ONCE DAILY, AFTER SUPPER
     Route: 048

REACTIONS (2)
  - Hospitalisation [Unknown]
  - Creatinine renal clearance decreased [Unknown]
